FAERS Safety Report 11960354 (Version 1)
Quarter: 2016Q1

REPORT INFORMATION
  Report Type: Report from Study
  Country: US (occurrence: US)
  Receive Date: 20160126
  Receipt Date: 20160126
  Transmission Date: 20160526
  Serious: No
  Sender: FDA-Public Use
  Company Number: US-ABBVIE-15K-163-1361251-00

PATIENT
  Sex: Male

DRUGS (1)
  1. HUMIRA [Suspect]
     Active Substance: ADALIMUMAB
     Indication: CROHN^S DISEASE
     Route: 065
     Dates: end: 20150211

REACTIONS (12)
  - Amnesia [Unknown]
  - Malaise [Unknown]
  - Sinusitis [Unknown]
  - Streptococcal infection [Unknown]
  - Cellulitis pharyngeal [Unknown]
  - Muscle spasms [Unknown]
  - Lymphadenopathy [Unknown]
  - Feeling abnormal [Unknown]
  - Fatigue [Unknown]
  - Influenza [Unknown]
  - Decreased appetite [Unknown]
  - Mood swings [Unknown]
